FAERS Safety Report 17840091 (Version 2)
Quarter: 2021Q2

REPORT INFORMATION
  Report Type: Spontaneous
  Country: US (occurrence: US)
  Receive Date: 20200529
  Receipt Date: 20210623
  Transmission Date: 20210717
  Serious: No
  Sender: FDA-Public Use
  Company Number: US-ACCORD-173772

PATIENT
  Age: 70 Year
  Sex: Male
  Weight: 58.97 kg

DRUGS (2)
  1. COLACE [Concomitant]
     Active Substance: DOCUSATE SODIUM
  2. CLONAZEPAM ACCORD [Suspect]
     Active Substance: CLONAZEPAM
     Indication: ANXIETY
     Dosage: ONCE DAILY
     Route: 048
     Dates: start: 201807, end: 202003

REACTIONS (8)
  - Parasomnia [Recovered/Resolved]
  - Nightmare [Recovered/Resolved]
  - Injury [Recovered/Resolved]
  - Product substitution issue [Unknown]
  - Muscle strain [Recovered/Resolved]
  - Fall [Unknown]
  - Rapid eye movement sleep behaviour disorder [Recovered/Resolved]
  - Sleep terror [Recovered/Resolved]

NARRATIVE: CASE EVENT DATE: 201807
